FAERS Safety Report 4710773-6 (Version None)
Quarter: 2005Q3

REPORT INFORMATION
  Report Type: 
  Country: None (occurrence: None)
  Receive Date: 20050707
  Receipt Date: 20050616
  Transmission Date: 20060218
  Serious: Yes (Hospitalization)
  Sender: FDA-Public Use
  Company Number: FR_050406159

PATIENT
  Age: 48 Year
  Sex: Male
  Weight: 56 kg

DRUGS (8)
  1. GEMZAR [Suspect]
     Indication: NON-SMALL CELL LUNG CANCER
     Dosage: 1250 MG/M2/2 OTHER
     Dates: start: 20050304, end: 20050324
  2. CISPLATIN [Concomitant]
  3. PHOSPHALUGEL (ALUMINUM PHOSPHATE GEL) [Concomitant]
  4. ZOLPIDEM TARTRATE [Concomitant]
  5. NEXIUM [Concomitant]
  6. ONDANSETRON HYDROCHLORIDE [Concomitant]
  7. SOLU-MEDROL [Concomitant]
  8. EMEND [Concomitant]

REACTIONS (4)
  - PARANEOPLASTIC SYNDROME [None]
  - PERIPHERAL ISCHAEMIA [None]
  - PERIPHERAL OCCLUSIVE DISEASE [None]
  - THROMBOCYTHAEMIA [None]
